FAERS Safety Report 4685426-3 (Version None)
Quarter: 2005Q2

REPORT INFORMATION
  Report Type: 
  Country: None (occurrence: None)
  Receive Date: 20050608
  Receipt Date: 20050606
  Transmission Date: 20051028
  Serious: Yes (Death)
  Sender: FDA-Public Use
  Company Number: PHFR2005GB02039

PATIENT
  Age: 45 Year
  Sex: Male

DRUGS (2)
  1. CLOZAPINE [Suspect]
     Route: 065
  2. WARFARIN [Concomitant]
     Route: 065

REACTIONS (3)
  - HYPERTENSION [None]
  - LEFT VENTRICULAR FAILURE [None]
  - VENTRICULAR HYPERTROPHY [None]
